FAERS Safety Report 15266685 (Version 2)
Quarter: 2018Q3

REPORT INFORMATION
  Report Type: Report from Study
  Country: AR (occurrence: AR)
  Receive Date: 20180810
  Receipt Date: 20180827
  Transmission Date: 20181010
  Serious: Yes (Other)
  Sender: FDA-Public Use
  Company Number: PHHY2018AR068108

PATIENT
  Age: 75 Year
  Sex: Female

DRUGS (5)
  1. FLUOXETINE [Concomitant]
     Active Substance: FLUOXETINE HYDROCHLORIDE
     Indication: PRODUCT USED FOR UNKNOWN INDICATION
     Route: 065
  2. GASTROMAX [Concomitant]
     Indication: PRODUCT USED FOR UNKNOWN INDICATION
     Route: 065
  3. ALENTAL [Concomitant]
     Indication: MENTAL DISORDER
     Route: 065
  4. EXFORGE [Suspect]
     Active Substance: AMLODIPINE BESYLATE\VALSARTAN
     Indication: HYPERTENSION
     Dosage: 1 DF (AMLODIPINE 10, VALSARTAN 160, UNITS NOT PROVIDED), QD
     Route: 065
  5. EXFORGE [Suspect]
     Active Substance: AMLODIPINE BESYLATE\VALSARTAN
     Dosage: 0.5 DF (AMLODIPINE 10, VALSARTAN 160, UNITS NOT PROVIDED), QD
     Route: 065

REACTIONS (15)
  - Scleroderma [Unknown]
  - Pulmonary hypertension [Unknown]
  - Memory impairment [Unknown]
  - Morton^s neuralgia [Unknown]
  - Influenza [Not Recovered/Not Resolved]
  - Skin tightness [Unknown]
  - Dry skin [Unknown]
  - Hypoaesthesia [Unknown]
  - Arterial occlusive disease [Unknown]
  - Mobility decreased [Not Recovered/Not Resolved]
  - Drug prescribing error [Not Recovered/Not Resolved]
  - Logorrhoea [Unknown]
  - Catarrh [Not Recovered/Not Resolved]
  - Blood pressure increased [Unknown]
  - Wrong technique in product usage process [Not Recovered/Not Resolved]

NARRATIVE: CASE EVENT DATE: 2017
